FAERS Safety Report 10993495 (Version 1)
Quarter: 2015Q2

REPORT INFORMATION
  Report Type: Spontaneous
  Country: US (occurrence: US)
  Receive Date: 20150407
  Receipt Date: 20150407
  Transmission Date: 20150821
  Serious: Yes (Other)
  Sender: FDA-Public Use
  Company Number: US-ACCORD-029802

PATIENT
  Age: 33 Year
  Sex: Male

DRUGS (4)
  1. MITOMYCIN. [Suspect]
     Active Substance: MITOMYCIN
     Indication: PROPHYLAXIS
     Route: 061
  2. MOXIFLOXACIN/MOXIFLOXACIN HYDROCHLORIDE [Suspect]
     Active Substance: MOXIFLOXACIN
     Indication: CONJUNCTIVITIS
     Route: 061
  3. FLUOROURACIL. [Suspect]
     Active Substance: FLUOROURACIL
     Indication: PROPHYLAXIS
  4. BEVACIZUMAB [Suspect]
     Active Substance: BEVACIZUMAB
     Indication: PROPHYLAXIS

REACTIONS (3)
  - Scleral thinning [Not Recovered/Not Resolved]
  - Scleral disorder [Recovering/Resolving]
  - Uveitis [Unknown]
